FAERS Safety Report 19967181 (Version 2)
Quarter: 2021Q4

REPORT INFORMATION
  Report Type: Spontaneous
  Country: US (occurrence: US)
  Receive Date: 20211019
  Receipt Date: 20211112
  Transmission Date: 20220303
  Serious: Yes (Death)
  Sender: FDA-Public Use
  Company Number: US-GW PHARMA-202110USGW04960

PATIENT

DRUGS (1)
  1. EPIDIOLEX [Suspect]
     Active Substance: CANNABIDIOL
     Indication: Infantile spasms
     Dosage: 110 MILLIGRAM
     Route: 048
     Dates: start: 20210823

REACTIONS (3)
  - Starvation [Fatal]
  - Feeding intolerance [Not Recovered/Not Resolved]
  - Product use in unapproved indication [Unknown]
